FAERS Safety Report 6693951-9 (Version None)
Quarter: 2010Q2

REPORT INFORMATION
  Report Type: 
  Country: None (occurrence: None)
  Receive Date: 20100423
  Receipt Date: 20100412
  Transmission Date: 20101027
  Serious: Yes (Other)
  Sender: FDA-Public Use
  Company Number: GB-PFIZER INC-2010045532

PATIENT
  Age: 54 Year
  Sex: Male

DRUGS (6)
  1. XANAX [Suspect]
     Dosage: 500 MG, 4X/DAY
  2. XANAX [Suspect]
     Dosage: 500 MG, 1X/DAY
     Dates: end: 20100101
  3. ROSUVASTATIN [Concomitant]
  4. ACETYLSALICYLIC ACID [Concomitant]
  5. AMLODIPINE [Concomitant]
  6. LORAZEPAM [Concomitant]
     Dosage: 1 MG, 2X/DAY
     Dates: start: 20100101

REACTIONS (3)
  - CRYING [None]
  - DEPRESSED MOOD [None]
  - MOOD SWINGS [None]
